FAERS Safety Report 17928250 (Version 2)
Quarter: 2020Q3

REPORT INFORMATION
  Report Type: Spontaneous
  Country: JP (occurrence: JP)
  Receive Date: 20200623
  Receipt Date: 20200908
  Transmission Date: 20201103
  Serious: Yes (Other)
  Sender: FDA-Public Use
  Company Number: JP-SUN PHARMACEUTICAL INDUSTRIES LTD-2020R1-250280

PATIENT
  Age: 2 Month

DRUGS (4)
  1. QUINIDINE [Suspect]
     Active Substance: QUINIDINE
     Indication: EPILEPSY
     Dosage: 2 MILLIGRAM/KILOGRAM, DAILY
     Route: 065
  2. TIPEPIDINE [Concomitant]
     Active Substance: TIPEPIDINE
     Indication: COUGH
     Dosage: 15 MILLIGRAM, DAILY
     Route: 065
  3. PERAMPANEL [Suspect]
     Active Substance: PERAMPANEL
     Indication: EPILEPSY
     Dosage: 0.1 MILLIGRAM/KILOGRAM, QD
     Route: 065
  4. DIAZEPAM. [Suspect]
     Active Substance: DIAZEPAM
     Indication: EPILEPSY
     Dosage: 0.9 MILLIGRAM/KILOGRAM, DAILY
     Route: 065

REACTIONS (2)
  - Therapeutic product effect incomplete [Unknown]
  - Cardiac disorder [Unknown]
